FAERS Safety Report 22173305 (Version 1)
Quarter: 2023Q2

REPORT INFORMATION
  Report Type: Spontaneous
  Country: US (occurrence: US)
  Receive Date: 20230404
  Receipt Date: 20230404
  Transmission Date: 20230722
  Serious: No
  Sender: FDA-Public Use
  Company Number: US-BAYER-2023A032711

PATIENT
  Sex: Female

DRUGS (1)
  1. STIVARGA [Suspect]
     Active Substance: REGORAFENIB
     Indication: Gastrointestinal stromal tumour
     Dosage: UNK

REACTIONS (3)
  - Product after taste [Recovered/Resolved]
  - Palmar-plantar erythrodysaesthesia syndrome [None]
  - Drug intolerance [None]

NARRATIVE: CASE EVENT DATE: 20230310
